FAERS Safety Report 11489718 (Version 1)
Quarter: 2015Q3

REPORT INFORMATION
  Report Type: Spontaneous
  Country: GB (occurrence: GB)
  Receive Date: 20150910
  Receipt Date: 20150910
  Transmission Date: 20151125
  Serious: Yes (Hospitalization, Other)
  Sender: FDA-Public Use
  Company Number: GB-GLAXOSMITHKLINE-GB2015126519

PATIENT
  Age: 52 Year
  Sex: Male
  Weight: 70 kg

DRUGS (5)
  1. ONDANSETRON [Suspect]
     Active Substance: ONDANSETRON
     Indication: GENERAL ANAESTHESIA
     Route: 041
     Dates: start: 20150821, end: 20150821
  2. PARACETAMOL [Concomitant]
     Active Substance: ACETAMINOPHEN
  3. PARECOXIB [Concomitant]
     Active Substance: PARECOXIB
  4. FENTANYL. [Concomitant]
     Active Substance: FENTANYL
  5. PROPOFOL. [Concomitant]
     Active Substance: PROPOFOL

REACTIONS (2)
  - Loss of consciousness [Recovered/Resolved]
  - Dyskinesia [Recovered/Resolved]

NARRATIVE: CASE EVENT DATE: 20150822
